FAERS Safety Report 5171280-2 (Version None)
Quarter: 2006Q4

REPORT INFORMATION
  Report Type: 
  Country: None (occurrence: None)
  Receive Date: 20061213
  Receipt Date: 20041214
  Transmission Date: 20070319
  Serious: Yes (Death, Hospitalization, Other)
  Sender: FDA-Public Use
  Company Number: US-AMGEN-KDL106174

PATIENT
  Sex: Male

DRUGS (1)
  1. ENBREL [Suspect]
     Indication: RHEUMATOID ARTHRITIS
     Route: 058
     Dates: start: 20031101

REACTIONS (10)
  - BURSITIS [None]
  - DYSPNOEA [None]
  - HAEMORRHAGE SUBCUTANEOUS [None]
  - HYPERSENSITIVITY [None]
  - PNEUMONIA [None]
  - PYREXIA [None]
  - RASH [None]
  - RESPIRATORY TRACT CONGESTION [None]
  - SEPSIS [None]
  - SWELLING [None]
